FAERS Safety Report 8683902 (Version 2)
Quarter: 2012Q4

REPORT INFORMATION
  Report Type: 
  Country: IE (occurrence: IE)
  Receive Date: 20120726
  Receipt Date: 20120907
  Transmission Date: 20130627
  Serious: Yes (Other)
  Sender: FDA-Public Use
  Company Number: IE-PFIZER INC-2012175810

PATIENT
  Age: 25 Year
  Sex: Male

DRUGS (2)
  1. LYRICA [Suspect]
     Dosage: 300 mg, 2x/day
     Route: 048
  2. MIRTAZAPINE [Concomitant]

REACTIONS (1)
  - Drug dependence [Unknown]
